FAERS Safety Report 7741653-X (Version None)
Quarter: 2011Q3

REPORT INFORMATION
  Report Type: 
  Country: None (occurrence: None)
  Receive Date: 20110912
  Receipt Date: 20110907
  Transmission Date: 20111222
  Serious: Yes (Other)
  Sender: FDA-Public Use
  Company Number: US-BRISTOL-MYERS SQUIBB COMPANY-16036972

PATIENT
  Age: 18 Year
  Sex: Male

DRUGS (3)
  1. ABILIFY [Suspect]
  2. GUANFACINE HYDROCHLORIDE [Concomitant]
  3. ZOLOFT [Concomitant]

REACTIONS (1)
  - LOWER LIMB FRACTURE [None]
